FAERS Safety Report 4437135-3 (Version None)
Quarter: 2004Q3

REPORT INFORMATION
  Report Type: 
  Country: None (occurrence: None)
  Receive Date: 20040726
  Receipt Date: 20040324
  Transmission Date: 20050211
  Serious: No
  Sender: FDA-Public Use
  Company Number: USA040362961

PATIENT
  Age: 63 Year
  Sex: Female
  Weight: 60 kg

DRUGS (4)
  1. FORTEO [Suspect]
     Indication: OSTEOPOROSIS
     Dosage: 20 UG/1 DAY
     Dates: start: 20040322
  2. VICODIN ES [Concomitant]
  3. VALIUM [Concomitant]
  4. CALCIUM WITH VITAMIN D [Concomitant]

REACTIONS (5)
  - ANXIETY [None]
  - DIARRHOEA [None]
  - DIZZINESS [None]
  - FEELING ABNORMAL [None]
  - NAUSEA [None]
